FAERS Safety Report 23581307 (Version 1)
Quarter: 2024Q1

REPORT INFORMATION
  Report Type: Spontaneous
  Country: KW (occurrence: KW)
  Receive Date: 20240229
  Receipt Date: 20240229
  Transmission Date: 20240410
  Serious: Yes (Other)
  Sender: FDA-Public Use
  Company Number: KW-ELI_LILLY_AND_COMPANY-KW202312007885

PATIENT
  Age: 30 Year
  Sex: Female

DRUGS (1)
  1. OLUMIANT [Suspect]
     Active Substance: BARICITINIB
     Indication: Alopecia areata
     Dosage: 4 MG, DAILY
     Route: 065
     Dates: start: 202211

REACTIONS (1)
  - Transient ischaemic attack [Unknown]
